FAERS Safety Report 18823973 (Version 1)
Quarter: 2021Q1

REPORT INFORMATION
  Report Type: Spontaneous
  Country: US (occurrence: US)
  Receive Date: 20210202
  Receipt Date: 20210202
  Transmission Date: 20210419
  Serious: Yes (Death)
  Sender: FDA-Public Use
  Company Number: US-ROCHE-2761691

PATIENT
  Sex: Male

DRUGS (13)
  1. DEXILANT [Concomitant]
     Active Substance: DEXLANSOPRAZOLE
  2. NIACIN. [Concomitant]
     Active Substance: NIACIN
  3. LIRICA [Concomitant]
     Active Substance: PREGABALIN
  4. BUSPIRONE [Concomitant]
     Active Substance: BUSPIRONE HYDROCHLORIDE
  5. SYNTHROID [Concomitant]
     Active Substance: LEVOTHYROXINE SODIUM
  6. TEMAZEPAM. [Concomitant]
     Active Substance: TEMAZEPAM
  7. LIPITOR [Concomitant]
     Active Substance: ATORVASTATIN CALCIUM
  8. B 100 [Concomitant]
  9. METFORMIN [Concomitant]
     Active Substance: METFORMIN HYDROCHLORIDE
  10. ESBRIET [Suspect]
     Active Substance: PIRFENIDONE
     Indication: IDIOPATHIC PULMONARY FIBROSIS
     Dosage: 3 TABLETS 3 TIMES A DAY; ONGOING: NO
     Route: 048
     Dates: start: 20191114
  11. ALIGN [Concomitant]
     Active Substance: BIFIDOBACTERIUM LONGUM SUBSP. INFANTIS
  12. ACYCLOVIR. [Concomitant]
     Active Substance: ACYCLOVIR
  13. LOSARTAN POTASSIUM. [Concomitant]
     Active Substance: LOSARTAN POTASSIUM

REACTIONS (1)
  - Death [Fatal]
